FAERS Safety Report 14078159 (Version 1)
Quarter: 2017Q4

REPORT INFORMATION
  Report Type: Spontaneous
  Country: US (occurrence: US)
  Receive Date: 20171012
  Receipt Date: 20171012
  Transmission Date: 20180321
  Serious: No
  Sender: FDA-Public Use
  Company Number: US-MYLANLABS-2017M1018694

PATIENT
  Age: 58 Year
  Sex: Male
  Weight: 106.58 kg

DRUGS (1)
  1. ASCORBIC ACID INJECTION, USP (0206-50K) [Suspect]
     Active Substance: ASCORBIC ACID
     Indication: RHEUMATOID ARTHRITIS
     Dosage: 5000 MG, QW
     Route: 041

REACTIONS (3)
  - Phlebitis [Recovered/Resolved]
  - Injection site pruritus [Recovered/Resolved]
  - Injection site pain [Recovered/Resolved]
